FAERS Safety Report 5099233-3 (Version None)
Quarter: 2006Q3

REPORT INFORMATION
  Report Type: 
  Country: None (occurrence: None)
  Receive Date: 20060731
  Receipt Date: 20051024
  Transmission Date: 20061208
  Serious: Yes (Other)
  Sender: FDA-Public Use
  Company Number: 218894

PATIENT
  Sex: Female

DRUGS (5)
  1. HERCEPTIN [Suspect]
     Indication: BREAST CANCER
     Dates: start: 20050801, end: 20050928
  2. TAXOTERE [Concomitant]
  3. SYNTHROID [Concomitant]
  4. TAMOXIFEN CITRATE [Concomitant]
  5. LEXAPRO (ESCITALOPRAM OXALATE) [Concomitant]

REACTIONS (1)
  - DILATATION VENTRICULAR [None]
